FAERS Safety Report 11614112 (Version 2)
Quarter: 2015Q4

REPORT INFORMATION
  Report Type: Spontaneous
  Country: JP (occurrence: JP)
  Receive Date: 20151008
  Receipt Date: 20151009
  Transmission Date: 20160304
  Serious: Yes (Death, Other)
  Sender: FDA-Public Use
  Company Number: JP-009507513-1510JPN004249

PATIENT

DRUGS (1)
  1. ORGARAN [Suspect]
     Active Substance: DANAPAROID SODIUM
     Dosage: UNK
     Route: 064

REACTIONS (3)
  - Foetal exposure timing unspecified [Recovered/Resolved]
  - Umbilical cord around neck [Fatal]
  - Respiratory arrest [Fatal]
